FAERS Safety Report 7907568-9 (Version None)
Quarter: 2011Q4

REPORT INFORMATION
  Report Type: 
  Country: None (occurrence: None)
  Receive Date: 20111109
  Receipt Date: 20111109
  Transmission Date: 20120403
  Serious: Yes (Disabling, Other)
  Sender: FDA-Public Use
  Company Number: None

PATIENT
  Sex: Female
  Weight: 70.3075 kg

DRUGS (2)
  1. CYMBALTA [Suspect]
     Indication: FIBROMYALGIA
     Dosage: 90 MG; TAKE 30 MG 3 TIMES A DAY; 2009 REDUCED TO 60 MG
     Dates: start: 20080101, end: 20110101
  2. CYMBALTA [Suspect]
     Indication: FIBROMYALGIA
     Dosage: 90 MG; TAKE 30 MG 3 TIMES A DAY; 2009 REDUCED TO 60 MG
     Dates: start: 20090101

REACTIONS (4)
  - ONYCHALGIA [None]
  - NAIL DISCOLOURATION [None]
  - CONTUSION [None]
  - ONYCHOMADESIS [None]
